FAERS Safety Report 16673073 (Version 3)
Quarter: 2019Q3

REPORT INFORMATION
  Report Type: Spontaneous
  Country: US (occurrence: US)
  Receive Date: 20190806
  Receipt Date: 20190917
  Transmission Date: 20191004
  Serious: No
  Sender: FDA-Public Use
  Company Number: US-PFIZER INC-2019331387

PATIENT
  Age: 73 Year
  Sex: Female

DRUGS (1)
  1. XELJANZ XR [Suspect]
     Active Substance: TOFACITINIB CITRATE
     Dosage: 11 MG, DAILY
     Route: 048
     Dates: start: 20190723, end: 20190821

REACTIONS (5)
  - Nasopharyngitis [Unknown]
  - Headache [Recovered/Resolved]
  - Hyperhidrosis [Unknown]
  - Sinusitis [Recovered/Resolved]
  - Cough [Recovered/Resolved]
